FAERS Safety Report 8464898-2 (Version None)
Quarter: 2012Q2

REPORT INFORMATION
  Report Type: 
  Country: None (occurrence: None)
  Receive Date: 20120626
  Receipt Date: 20120615
  Transmission Date: 20120825
  Serious: Yes (Other)
  Sender: FDA-Public Use
  Company Number: BR-SANOFI-AVENTIS-2012SA043332

PATIENT
  Sex: Female

DRUGS (2)
  1. LANTUS [Suspect]
     Route: 065
  2. NPH INSULIN [Concomitant]

REACTIONS (14)
  - COMA [None]
  - DIABETES MELLITUS INADEQUATE CONTROL [None]
  - VISUAL IMPAIRMENT [None]
  - HYPOGLYCAEMIA [None]
  - CONFUSIONAL STATE [None]
  - LOSS OF CONSCIOUSNESS [None]
  - EYE HAEMORRHAGE [None]
  - ASTHENIA [None]
  - HYPOGLYCAEMIC COMA [None]
  - HYPERGLYCAEMIA [None]
  - DIABETIC RETINOPATHY [None]
  - STRESS [None]
  - MATERNAL EXPOSURE DURING PREGNANCY [None]
  - ABORTION [None]
